FAERS Safety Report 21219651 (Version 2)
Quarter: 2022Q3

REPORT INFORMATION
  Report Type: Report from Study
  Country: CA (occurrence: CA)
  Receive Date: 20220817
  Receipt Date: 20220928
  Transmission Date: 20221027
  Serious: Yes (Death, Hospitalization, Other)
  Sender: FDA-Public Use
  Company Number: CA-BRISTOL-MYERS SQUIBB COMPANY-2022-079009

PATIENT
  Age: 15 Year
  Sex: Male

DRUGS (7)
  1. OPDIVO [Suspect]
     Active Substance: NIVOLUMAB
     Indication: Medulloblastoma recurrent
     Dosage: 113 MG (3 MG/KG)
     Route: 042
     Dates: start: 20220722, end: 20220722
  2. ACETAZOLAMIDE [Concomitant]
     Active Substance: ACETAZOLAMIDE
     Indication: CSF pressure abnormal
     Route: 042
     Dates: start: 20220802, end: 20220814
  3. DEXAMETHASONE [Concomitant]
     Active Substance: DEXAMETHASONE
     Indication: Oedema
     Dosage: 19 MG, DAILY
     Route: 042
     Dates: start: 202206, end: 20220814
  4. KEPPRA [Concomitant]
     Active Substance: LEVETIRACETAM
     Indication: Seizure
     Route: 042
     Dates: start: 20220804, end: 20220814
  5. MORPHINE [Concomitant]
     Active Substance: MORPHINE
     Indication: Pain
     Route: 042
     Dates: end: 20220814
  6. PALONOSETRON [Concomitant]
     Active Substance: PALONOSETRON
     Indication: Nausea
     Route: 042
     Dates: start: 202205, end: 20220814
  7. PIPERACILLIN AND TAZOBACTAM [Concomitant]
     Active Substance: PIPERACILLIN SODIUM\TAZOBACTAM SODIUM
     Indication: Urinary tract infection
     Route: 042
     Dates: start: 20220804, end: 20220814

REACTIONS (2)
  - Off label use [Unknown]
  - Malignant neoplasm progression [Fatal]

NARRATIVE: CASE EVENT DATE: 20220814
